FAERS Safety Report 8163933-9 (Version None)
Quarter: 2012Q1

REPORT INFORMATION
  Report Type: 
  Country: None (occurrence: None)
  Receive Date: 20120224
  Receipt Date: 20120214
  Transmission Date: 20120608
  Serious: Yes (Other)
  Sender: FDA-Public Use
  Company Number: US-JNJFOC-20120207772

PATIENT
  Sex: Female
  Weight: 68.04 kg

DRUGS (4)
  1. ALBUTEROL [Concomitant]
     Indication: ASTHMA
     Route: 055
     Dates: start: 20060101
  2. CENTRUM MULTIVITAMINS [Concomitant]
     Indication: VITAMIN SUPPLEMENTATION
  3. REMICADE [Suspect]
     Indication: CROHN'S DISEASE
     Route: 042
     Dates: start: 20110616
  4. REMICADE [Suspect]
     Route: 042
     Dates: start: 20120127

REACTIONS (5)
  - INCREASED APPETITE [None]
  - HEADACHE [None]
  - WEIGHT INCREASED [None]
  - DEPRESSION [None]
  - ANXIETY [None]
